FAERS Safety Report 12826888 (Version 2)
Quarter: 2016Q4

REPORT INFORMATION
  Report Type: Report from Study
  Country: SG (occurrence: SG)
  Receive Date: 20161006
  Receipt Date: 20161109
  Transmission Date: 20170207
  Serious: Yes (Hospitalization, Other)
  Sender: FDA-Public Use
  Company Number: SG-B.I. PHARMACEUTICALS,INC./RIDGEFIELD-2016-BI-27340BI

PATIENT
  Age: 71 Year
  Sex: Male
  Weight: 62.5 kg

DRUGS (9)
  1. SALBUTAMOL [Concomitant]
     Active Substance: ALBUTEROL
     Indication: CHRONIC OBSTRUCTIVE PULMONARY DISEASE
     Dosage: DAILY DOSE: 2 PUFFS PRN
     Route: 048
     Dates: start: 20081002
  2. BECLOMETHASONE [Concomitant]
     Active Substance: BECLOMETHASONE
     Indication: CHRONIC OBSTRUCTIVE PULMONARY DISEASE
     Route: 048
     Dates: start: 20130725
  3. ASPIRIN. [Concomitant]
     Active Substance: ASPIRIN
     Indication: ANGINA PECTORIS
     Route: 048
     Dates: start: 20101016
  4. FINASTERIDE. [Concomitant]
     Active Substance: FINASTERIDE
     Indication: BENIGN PROSTATIC HYPERPLASIA
     Route: 048
     Dates: start: 20141226
  5. OMEPRAZOLE. [Concomitant]
     Active Substance: OMEPRAZOLE
     Indication: GASTROINTESTINAL HAEMORRHAGE
     Route: 048
     Dates: start: 20161011
  6. SIMVASTATIN. [Concomitant]
     Active Substance: SIMVASTATIN
     Indication: HYPERLIPIDAEMIA
     Route: 048
     Dates: start: 20101016
  7. ISOSORBIDE MONONITRATE. [Concomitant]
     Active Substance: ISOSORBIDE MONONITRATE
     Indication: ANGINA PECTORIS
     Dosage: DIALY DOSE: 90MG PRN
     Route: 048
     Dates: start: 20141021
  8. ENALAPRIL [Concomitant]
     Active Substance: ENALAPRIL
     Indication: HYPERTENSION
     Route: 048
     Dates: start: 20141021
  9. BLINDED TIOTROPIUM BROMIDE+OLODATEROL [Suspect]
     Active Substance: OLODATEROL HYDROCHLORIDE\TIOTROPIUM BROMIDE MONOHYDRATE
     Indication: CHRONIC OBSTRUCTIVE PULMONARY DISEASE
     Route: 055
     Dates: start: 20160104

REACTIONS (3)
  - Pneumonia [Recovered/Resolved]
  - Urinary tract infection [Recovered/Resolved]
  - Myocardial infarction [Recovered/Resolved]

NARRATIVE: CASE EVENT DATE: 20160415
